FAERS Safety Report 20449802 (Version 1)
Quarter: 2022Q1

REPORT INFORMATION
  Report Type: Spontaneous
  Country: JP (occurrence: JP)
  Receive Date: 20220209
  Receipt Date: 20220209
  Transmission Date: 20220423
  Serious: Yes (Other)
  Sender: FDA-Public Use
  Company Number: JP-PFIZER INC-202200186551

PATIENT

DRUGS (1)
  1. LYRICA [Suspect]
     Active Substance: PREGABALIN
     Dosage: UNK
     Route: 048

REACTIONS (7)
  - Melaena [Unknown]
  - Enterocolitis haemorrhagic [Unknown]
  - Retinal haemorrhage [Unknown]
  - Abdominal pain lower [Unknown]
  - Epistaxis [Unknown]
  - Diarrhoea [Unknown]
  - Constipation [Unknown]
